FAERS Safety Report 11965128 (Version 4)
Quarter: 2016Q1

REPORT INFORMATION
  Report Type: Spontaneous
  Country: US (occurrence: US)
  Receive Date: 20160127
  Receipt Date: 20160224
  Transmission Date: 20160526
  Serious: No
  Sender: FDA-Public Use
  Company Number: US-009507513-1601USA006323

PATIENT

DRUGS (1)
  1. NEXPLANON [Suspect]
     Active Substance: ETONOGESTREL
     Dosage: 68 MG IMPLANT / 3 YEARS
     Route: 059
     Dates: start: 20130122, end: 20151208

REACTIONS (2)
  - No adverse event [Unknown]
  - Device breakage [Recovered/Resolved]
